FAERS Safety Report 7170561-0 (Version None)
Quarter: 2010Q4

REPORT INFORMATION
  Report Type: 
  Country: None (occurrence: None)
  Receive Date: 20101217
  Receipt Date: 20101209
  Transmission Date: 20110411
  Serious: Yes (Life-Threatening, Disabling, Other)
  Sender: FDA-Public Use
  Company Number: US-PURDUE-USA-2010-0058250

PATIENT
  Age: 37 Year
  Sex: Male

DRUGS (2)
  1. OXYCONTIN [Suspect]
  2. ANTIDEPRESSANTS [Concomitant]
     Indication: DEPRESSION

REACTIONS (3)
  - SUBSTANCE ABUSE [None]
  - SUICIDE ATTEMPT [None]
  - THERMAL BURN [None]
